FAERS Safety Report 4821694-2 (Version None)
Quarter: 2005Q4

REPORT INFORMATION
  Report Type: 
  Country: None (occurrence: None)
  Receive Date: 20051104
  Receipt Date: 20051104
  Transmission Date: 20060501
  Serious: Yes (Other)
  Sender: FDA-Public Use
  Company Number: None

PATIENT
  Age: 26 Year
  Sex: Female
  Weight: 63.5036 kg

DRUGS (2)
  1. FLUOXETINE [Suspect]
     Indication: ANXIETY DISORDER
     Dosage: 20MG 1 A DAY PO
     Route: 048
     Dates: start: 20050901, end: 20051102
  2. FLUOXETINE [Suspect]
     Indication: VULVOVAGINAL DISCOMFORT
     Dosage: 20MG 1 A DAY PO
     Route: 048
     Dates: start: 20050901, end: 20051102

REACTIONS (6)
  - DRUG EFFECT DECREASED [None]
  - FEELING ABNORMAL [None]
  - MOOD ALTERED [None]
  - MOOD SWINGS [None]
  - PAIN [None]
  - THERAPEUTIC RESPONSE UNEXPECTED WITH DRUG SUBSTITUTION [None]
